FAERS Safety Report 4991434-5 (Version None)
Quarter: 2006Q2

REPORT INFORMATION
  Report Type: 
  Country: None (occurrence: None)
  Receive Date: 20060502
  Receipt Date: 20060502
  Transmission Date: 20061013
  Serious: Yes (Hospitalization)
  Sender: FDA-Public Use
  Company Number: None

PATIENT
  Sex: Male
  Weight: 15.9 kg

DRUGS (4)
  1. DOXORUBICIN HCL [Suspect]
     Indication: PRECURSOR B-LYMPHOBLASTIC LYMPHOMA
     Dosage: 40 MG
     Dates: start: 20060328, end: 20060412
  2. PEG-L-ASPARAGINASE (K-H) [Suspect]
     Dosage: 1625 UNIT
     Dates: start: 20060328, end: 20060328
  3. VINCRISTINE SULFATE [Suspect]
     Dosage: 3 MG
     Dates: start: 20060328, end: 20060412
  4. DEXAMETHASONE [Suspect]
     Dosage: 69.3 MG
     Dates: start: 20060328, end: 20060418

REACTIONS (14)
  - ABDOMINAL PAIN [None]
  - ASCITES [None]
  - BLOOD CULTURE POSITIVE [None]
  - CANDIDIASIS [None]
  - COAGULOPATHY [None]
  - COLITIS [None]
  - DECREASED APPETITE [None]
  - DIARRHOEA [None]
  - ENCEPHALOPATHY [None]
  - FEBRILE NEUTROPENIA [None]
  - HEPATOMEGALY [None]
  - INTERNATIONAL NORMALISED RATIO INCREASED [None]
  - OBSTRUCTION [None]
  - STREPTOCOCCAL INFECTION [None]
